FAERS Safety Report 5396498-5 (Version None)
Quarter: 2007Q3

REPORT INFORMATION
  Report Type: 
  Country: None (occurrence: None)
  Receive Date: 20070718
  Receipt Date: 20070410
  Transmission Date: 20080115
  Serious: Yes (Hospitalization, Other)
  Sender: FDA-Public Use
  Company Number: 2006146795

PATIENT
  Sex: Male

DRUGS (2)
  1. CELEBREX [Suspect]
     Indication: PAIN
     Dosage: 200 MG (200 MG,1 IN 1 D), ORAL
     Route: 048
     Dates: start: 20030701
  2. VIOXX [Suspect]
     Dates: start: 20010921, end: 20030401

REACTIONS (1)
  - MYOCARDIAL INFARCTION [None]
